FAERS Safety Report 16566697 (Version 19)
Quarter: 2020Q2

REPORT INFORMATION
  Report Type: Spontaneous
  Country: US (occurrence: US)
  Receive Date: 20190712
  Receipt Date: 20200526
  Transmission Date: 20200713
  Serious: Yes (Hospitalization, Other)
  Sender: FDA-Public Use
  Company Number: US-PFIZER INC-2019285894

PATIENT
  Age: 56 Year
  Sex: Female
  Weight: 64 kg

DRUGS (5)
  1. LYRICA [Suspect]
     Active Substance: PREGABALIN
     Indication: COMPLEX REGIONAL PAIN SYNDROME
     Dosage: 150 MG, 4X/DAY
     Route: 048
     Dates: start: 2017
  2. LYRICA [Suspect]
     Active Substance: PREGABALIN
     Indication: TRIGEMINAL NEURALGIA
     Dosage: 150 MG, 4X/DAY
     Route: 048
     Dates: start: 2017
  3. LYRICA [Suspect]
     Active Substance: PREGABALIN
     Indication: NERVE INJURY
  4. LYRICA [Suspect]
     Active Substance: PREGABALIN
     Indication: ORAL SURGERY
     Dosage: UNK
  5. LYRICA [Suspect]
     Active Substance: PREGABALIN
     Indication: NEURALGIA

REACTIONS (14)
  - Haemorrhage [Unknown]
  - Product dose omission [Unknown]
  - Malaise [Unknown]
  - Confusional state [Unknown]
  - Drug ineffective [Unknown]
  - Deafness unilateral [Unknown]
  - Speech disorder [Unknown]
  - Ear pain [Unknown]
  - Vomiting [Unknown]
  - Hypoacusis [Unknown]
  - Chest pain [Unknown]
  - Fatigue [Unknown]
  - Mouth swelling [Unknown]
  - Anxiety [Unknown]
